FAERS Safety Report 6279543-4 (Version None)
Quarter: 2009Q3

REPORT INFORMATION
  Report Type: 
  Country: None (occurrence: None)
  Receive Date: 20090723
  Receipt Date: 20090717
  Transmission Date: 20100115
  Serious: Yes (Hospitalization)
  Sender: FDA-Public Use
  Company Number: JP-JNJFOC-20090705958

PATIENT
  Age: 54 Year
  Sex: Male

DRUGS (8)
  1. RISPERDAL [Suspect]
     Indication: HALLUCINATION
     Route: 048
  2. SOLANAX [Concomitant]
     Route: 048
  3. MAGMITT [Concomitant]
     Route: 048
  4. LANDSEN [Concomitant]
     Route: 048
  5. VEGETAMIN-B [Concomitant]
     Route: 048
  6. AMOBAN [Concomitant]
     Route: 048
  7. HALCION [Concomitant]
     Route: 048
  8. DEPAS [Concomitant]
     Route: 048

REACTIONS (5)
  - BLOOD CREATINE PHOSPHOKINASE INCREASED [None]
  - BLOOD URINE PRESENT [None]
  - MUSCULAR WEAKNESS [None]
  - PROTEIN URINE [None]
  - RHABDOMYOLYSIS [None]
